FAERS Safety Report 7286567-7 (Version None)
Quarter: 2011Q1

REPORT INFORMATION
  Report Type: 
  Country: None (occurrence: None)
  Receive Date: 20110210
  Receipt Date: 20110207
  Transmission Date: 20110831
  Serious: No
  Sender: FDA-Public Use
  Company Number: GB-ABBOTT-10P-167-0692839-00

PATIENT
  Sex: Male
  Weight: 120 kg

DRUGS (2)
  1. HUMIRA [Suspect]
     Indication: PSORIASIS
     Dates: start: 20091201
  2. HUMIRA [Suspect]
     Route: 058
     Dates: start: 20100301

REACTIONS (1)
  - ALANINE AMINOTRANSFERASE INCREASED [None]
